FAERS Safety Report 20519909 (Version 2)
Quarter: 2022Q1

REPORT INFORMATION
  Report Type: Spontaneous
  Country: ES (occurrence: ES)
  Receive Date: 20220225
  Receipt Date: 20220308
  Transmission Date: 20220423
  Serious: Yes (Hospitalization, Other)
  Sender: FDA-Public Use
  Company Number: ES-MLMSERVICE-20220216-3375059-1

PATIENT
  Age: 38 Year
  Sex: Male

DRUGS (5)
  1. LAMOTRIGINE [Suspect]
     Active Substance: LAMOTRIGINE
     Indication: Depressive symptom
     Dosage: TITRATED UP TO 200 MILLIGRAM, QD
     Route: 065
  2. LAMOTRIGINE [Suspect]
     Active Substance: LAMOTRIGINE
     Dosage: 200 MILLIGRAM, QD
     Route: 065
  3. EMTRICITABINE AND TENOFOVIR DISOPROXIL FUMARATE [Concomitant]
     Active Substance: EMTRICITABINE\TENOFOVIR DISOPROXIL FUMARATE
     Indication: HIV infection
     Dosage: UNK
     Route: 065
  4. ASENAPINE [Concomitant]
     Active Substance: ASENAPINE
     Indication: Suicidal ideation
     Dosage: 5 MILLIGRAM, QD
     Route: 065
  5. ASENAPINE [Concomitant]
     Active Substance: ASENAPINE
     Indication: Psychotic disorder

REACTIONS (1)
  - Mania [Recovered/Resolved]
